FAERS Safety Report 5119170-5 (Version None)
Quarter: 2006Q3

REPORT INFORMATION
  Report Type: 
  Country: None (occurrence: None)
  Receive Date: 20060929
  Receipt Date: 20060929
  Transmission Date: 20061208
  Serious: Yes (Hospitalization)
  Sender: FDA-Public Use
  Company Number: None

PATIENT
  Age: 35 Year
  Sex: Male
  Weight: 73 kg

DRUGS (4)
  1. ULTRAM [Suspect]
     Indication: INTERVERTEBRAL DISC DEGENERATION
     Dosage: REPORTED TAKING }8 TABS/DAY   PRN   PO
     Route: 048
     Dates: start: 20050901, end: 20060911
  2. ULTRAM [Suspect]
     Indication: NECK PAIN
     Dosage: REPORTED TAKING }8 TABS/DAY   PRN   PO
     Route: 048
     Dates: start: 20050901, end: 20060911
  3. ACETAMINOPHEN [Concomitant]
  4. IBUPROFEN [Concomitant]

REACTIONS (9)
  - CONTUSION [None]
  - CONVULSION [None]
  - FALL [None]
  - HEAD INJURY [None]
  - HEADACHE [None]
  - INCORRECT DOSE ADMINISTERED [None]
  - LOCALISED OEDEMA [None]
  - NAUSEA [None]
  - VOMITING [None]
